FAERS Safety Report 5668669-1 (Version None)
Quarter: 2008Q1

REPORT INFORMATION
  Report Type: 
  Country: None (occurrence: None)
  Receive Date: 20080312
  Receipt Date: 20080229
  Transmission Date: 20080703
  Serious: Yes (Death, Other)
  Sender: FDA-Public Use
  Company Number: 2006VX001775

PATIENT
  Age: 58 Year
  Sex: Male

DRUGS (4)
  1. TASMAR (TOLCAPONE) [Suspect]
     Indication: PARKINSON'S DISEASE
     Dosage: 200 MG;TID;PO
     Route: 048
     Dates: start: 19940101
  2. SINEMET [Concomitant]
  3. BROMOCRIPTINE MESYLATE [Concomitant]
  4. AMANTADINE HCL [Concomitant]

REACTIONS (7)
  - AORTIC VALVE CALCIFICATION [None]
  - EMPHYSEMA [None]
  - IATROGENIC INJURY [None]
  - LEFT VENTRICULAR HYPERTROPHY [None]
  - PULMONARY OEDEMA [None]
  - RIB FRACTURE [None]
  - SUDDEN DEATH [None]
